FAERS Safety Report 6196801-2 (Version None)
Quarter: 2009Q2

REPORT INFORMATION
  Report Type: 
  Country: None (occurrence: None)
  Receive Date: 20090520
  Receipt Date: 20090519
  Transmission Date: 20091009
  Serious: Yes (Life-Threatening, Hospitalization)
  Sender: FDA-Public Use
  Company Number: PHHY2009FR15309

PATIENT
  Sex: Male

DRUGS (3)
  1. SANDIMMUNE [Suspect]
     Indication: COLITIS ULCERATIVE
     Dosage: 2 MG/KG
     Dates: start: 20090403, end: 20090405
  2. SOL MEDROL [Concomitant]
     Dosage: 2 MG/KG/DAY
     Dates: start: 20090403, end: 20090405
  3. SOL MEDROL [Concomitant]
     Dosage: UNK
     Dates: start: 20090406

REACTIONS (4)
  - ABDOMINAL PAIN [None]
  - BLOOD AMYLASE INCREASED [None]
  - LIPASE INCREASED [None]
  - PANCREATITIS NECROTISING [None]
